FAERS Safety Report 7494650-6 (Version None)
Quarter: 2011Q2

REPORT INFORMATION
  Report Type: 
  Country: None (occurrence: None)
  Receive Date: 20110520
  Receipt Date: 20090316
  Transmission Date: 20111010
  Serious: Yes (Other)
  Sender: FDA-Public Use
  Company Number: US-BAYER-200915432NA

PATIENT
  Sex: Female
  Weight: 58.957 kg

DRUGS (8)
  1. ASPIRIN [Concomitant]
     Route: 048
  2. SOLU-MEDROL [Concomitant]
     Dosage: 1 G, UNK
     Route: 042
     Dates: start: 19990715, end: 19990715
  3. VERSED [Concomitant]
     Dosage: UNK G, UNK
     Dates: start: 19990715, end: 19990715
  4. TRASYLOL [Suspect]
     Indication: CORONARY ARTERY BYPASS
     Dosage: 100ML BOLUS NO INFUSION.
     Dates: start: 19990715, end: 19990715
  5. VASOTEC [Concomitant]
     Route: 048
  6. MOTRIN [Concomitant]
     Route: 048
  7. MIDOL IB [Concomitant]
  8. VANCOMYCIN [Concomitant]
     Dosage: 1GM
     Route: 042
     Dates: start: 19990715, end: 19990715

REACTIONS (10)
  - CEREBROVASCULAR ACCIDENT [None]
  - ADVERSE EVENT [None]
  - ANXIETY [None]
  - INJURY [None]
  - PAIN [None]
  - APHASIA [None]
  - UNEVALUABLE EVENT [None]
  - FEAR [None]
  - DEPRESSION [None]
  - ANHEDONIA [None]
